FAERS Safety Report 10568140 (Version 1)
Quarter: 2014Q4

REPORT INFORMATION
  Report Type: Spontaneous
  Country: US (occurrence: None)
  Receive Date: 20141105
  Receipt Date: 20141105
  Transmission Date: 20150529
  Serious: Yes (Life-Threatening, Hospitalization, Disabling)
  Sender: FDA-Public Use
  Company Number: None

PATIENT
  Age: 51 Year
  Sex: Female
  Weight: 73.94 kg

DRUGS (1)
  1. BENICAR [Suspect]
     Active Substance: OLMESARTAN MEDOXOMIL
     Indication: HYPERTENSION
     Dosage: 1 PILL ONCE DAILY TAKEN BY MOUTH
     Route: 048

REACTIONS (10)
  - Dehydration [None]
  - Muscle spasms [None]
  - Pain [None]
  - Apparent death [None]
  - Abdominal adhesions [None]
  - Blood magnesium decreased [None]
  - Inflammatory bowel disease [None]
  - Anaemia [None]
  - Blood potassium decreased [None]
  - Diarrhoea [None]

NARRATIVE: CASE EVENT DATE: 20131127
